FAERS Safety Report 9536487 (Version 1)
Quarter: 2013Q3

REPORT INFORMATION
  Report Type: Spontaneous
  Country: US (occurrence: None)
  Receive Date: 20130917
  Receipt Date: 20130917
  Transmission Date: 20140515
  Serious: Yes (Life-Threatening)
  Sender: FDA-Public Use
  Company Number: None

PATIENT
  Age: 33 Year
  Sex: Female
  Weight: 74.84 kg

DRUGS (1)
  1. HUMIRA [Suspect]
     Indication: RHEUMATOID ARTHRITIS
     Dosage: 1 PEN INTO THE MUSCLE
     Route: 030
     Dates: start: 20110601, end: 20130911

REACTIONS (6)
  - Dyspnoea [None]
  - Chest discomfort [None]
  - Throat tightness [None]
  - Swollen tongue [None]
  - Injection site urticaria [None]
  - Injection site rash [None]
